FAERS Safety Report 13254484 (Version 2)
Quarter: 2017Q1

REPORT INFORMATION
  Report Type: Spontaneous
  Country: US (occurrence: US)
  Receive Date: 20170221
  Receipt Date: 20170301
  Transmission Date: 20170428
  Serious: No
  Sender: FDA-Public Use
  Company Number: US-ALEXION PHARMACEUTICALS INC.-A201701676

PATIENT
  Sex: Female

DRUGS (1)
  1. STRENSIQ [Suspect]
     Active Substance: ASFOTASE ALFA
     Indication: HYPOPHOSPHATASIA
     Dosage: UNK
     Route: 058

REACTIONS (8)
  - Injection site pain [Unknown]
  - Injection site warmth [Unknown]
  - Erythema [Unknown]
  - Injection site erythema [Unknown]
  - Injection site swelling [Unknown]
  - Skin induration [Unknown]
  - Pain [Unknown]
  - Injection site reaction [Unknown]

NARRATIVE: CASE EVENT DATE: 20170215
